FAERS Safety Report 6380521-5 (Version None)
Quarter: 2009Q3

REPORT INFORMATION
  Report Type: 
  Country: None (occurrence: None)
  Receive Date: 20090923
  Receipt Date: 20090907
  Transmission Date: 20100115
  Serious: Yes (Disabling)
  Sender: FDA-Public Use
  Company Number: 8042757

PATIENT
  Age: 64 Year
  Sex: Male

DRUGS (11)
  1. KEPPRA [Suspect]
     Dosage: 500 MG 2/D PO
     Route: 048
     Dates: start: 20071107, end: 20081120
  2. KEPPRA [Suspect]
     Indication: EPILEPSY
     Dosage: 500 MG /D PO
     Route: 048
     Dates: start: 20081121, end: 20081128
  3. KEPPRA [Suspect]
     Indication: EPILEPSY
     Dosage: 250 MG /D PO
     Route: 048
     Dates: start: 20090318
  4. LAMICTAL [Concomitant]
  5. NOVONORM [Concomitant]
  6. CREON [Concomitant]
  7. LIPANTHYL [Concomitant]
  8. COTAREG [Concomitant]
  9. TEMERIT [Concomitant]
  10. ALLOPURINOL [Concomitant]
  11. INSULINE NPH [Concomitant]

REACTIONS (3)
  - ECZEMA [None]
  - EPILEPSY [None]
  - TREATMENT FAILURE [None]
